FAERS Safety Report 7969498-6 (Version None)
Quarter: 2011Q4

REPORT INFORMATION
  Report Type: 
  Country: None (occurrence: None)
  Receive Date: 20111212
  Receipt Date: 20111201
  Transmission Date: 20120403
  Serious: No
  Sender: FDA-Public Use
  Company Number: US-BIOGENIDEC-2011BI045858

PATIENT
  Age: 60 Year
  Sex: Male

DRUGS (6)
  1. AVONEX [Suspect]
     Indication: MULTIPLE SCLEROSIS
     Route: 030
     Dates: start: 20111104, end: 20111110
  2. IBUPROFEN (ADVIL) [Concomitant]
     Indication: PREMEDICATION
  3. AVONEX [Suspect]
     Route: 030
     Dates: start: 20111125
  4. AVONEX [Suspect]
     Route: 030
     Dates: start: 20111118, end: 20111124
  5. AVONEX [Suspect]
     Route: 030
     Dates: start: 20111111, end: 20111117
  6. VALACYCLOVIR [Concomitant]
     Indication: ANTIVIRAL TREATMENT

REACTIONS (3)
  - INFLUENZA LIKE ILLNESS [None]
  - MOBILITY DECREASED [None]
  - LETHARGY [None]
